FAERS Safety Report 11598906 (Version 1)
Quarter: 2015Q4

REPORT INFORMATION
  Report Type: Spontaneous
  Country: US (occurrence: US)
  Receive Date: 20151006
  Receipt Date: 20151006
  Transmission Date: 20160304
  Serious: No
  Sender: FDA-Public Use
  Company Number: US-BAYER-2015-437524

PATIENT
  Age: 3 Year
  Sex: Female
  Weight: 12.25 kg

DRUGS (2)
  1. CHILDREN CLARITIN ALLERGY [Suspect]
     Active Substance: LORATADINE
     Dosage: ACCIDENTALLY GAVE CHILD 2 TEASPOONS
  2. CHILDREN CLARITIN ALLERGY [Suspect]
     Active Substance: LORATADINE
     Dosage: UNK. UNK

REACTIONS (1)
  - Extra dose administered [None]
